FAERS Safety Report 8553265-9 (Version None)
Quarter: 2012Q3

REPORT INFORMATION
  Report Type: 
  Country: None (occurrence: None)
  Receive Date: 20120731
  Receipt Date: 20120723
  Transmission Date: 20120928
  Serious: Yes (Hospitalization)
  Sender: FDA-Public Use
  Company Number: JP-VERTEX PHARMACEUTICALS INC.-AE-2012-006325

PATIENT
  Age: 54 Year
  Sex: Female

DRUGS (8)
  1. TELAVIC (TELAPREVIR) [Suspect]
     Indication: HEPATITIS C
     Route: 048
     Dates: start: 20120307, end: 20120329
  2. RIBAVIRIN [Concomitant]
     Indication: HEPATITIS C
     Route: 048
     Dates: start: 20120307, end: 20120329
  3. BUFFERIN [Concomitant]
     Route: 048
     Dates: start: 20120307
  4. TELAVIC (TELAPREVIR) [Suspect]
     Route: 048
     Dates: start: 20120330
  5. PEGINTERFERON ALFA-2B [Concomitant]
     Indication: HEPATITIS C
     Route: 058
     Dates: start: 20120307, end: 20120327
  6. PEGINTERFERON ALFA-2B [Concomitant]
     Route: 058
     Dates: start: 20120403
  7. VOLTAREN [Concomitant]
     Route: 054
     Dates: start: 20120307
  8. RIBAVIRIN [Concomitant]
     Route: 048
     Dates: start: 20120330

REACTIONS (1)
  - DECREASED APPETITE [None]
